FAERS Safety Report 18904854 (Version 5)
Quarter: 2025Q3

REPORT INFORMATION
  Report Type: Report from Study
  Country: AU (occurrence: AU)
  Receive Date: 20210217
  Receipt Date: 20250708
  Transmission Date: 20251021
  Serious: Yes (Death, Life-Threatening, Hospitalization, Other)
  Sender: NOVARTIS
  Company Number: NVSC2020AU343178

PATIENT
  Age: 12 Year
  Sex: Female

DRUGS (1)
  1. KYMRIAH [Suspect]
     Active Substance: TISAGENLECLEUCEL
     Indication: Acute lymphocytic leukaemia
     Route: 065
     Dates: start: 20201109

REACTIONS (20)
  - Respiratory failure [Fatal]
  - Pneumonia aspiration [Fatal]
  - Immune effector cell-associated neurotoxicity syndrome [Unknown]
  - Headache [Unknown]
  - Vomiting [Unknown]
  - Somnolence [Unknown]
  - Confusional state [Unknown]
  - Neurotoxicity [Unknown]
  - Nervous system disorder [Recovering/Resolving]
  - White matter lesion [Unknown]
  - Pneumothorax [Unknown]
  - Visual impairment [Unknown]
  - Vision blurred [Unknown]
  - Malaise [Unknown]
  - Asthenia [Unknown]
  - Lethargy [Unknown]
  - Immune effector cell-associated neurotoxicity syndrome [Recovered/Resolved]
  - Dyskinesia [Recovered/Resolved]
  - Cytokine release syndrome [Recovered/Resolved]
  - Nervous system disorder [Unknown]

NARRATIVE: CASE EVENT DATE: 20201221
